FAERS Safety Report 23152844 (Version 1)
Quarter: 2023Q4

REPORT INFORMATION
  Report Type: Spontaneous
  Country: EG (occurrence: EG)
  Receive Date: 20231107
  Receipt Date: 20231107
  Transmission Date: 20240109
  Serious: Yes (Other)
  Sender: FDA-Public Use
  Company Number: EG-MLMSERVICE-2023102746208181

PATIENT
  Sex: Male

DRUGS (6)
  1. FLUOROURACIL [Suspect]
     Active Substance: FLUOROURACIL
     Indication: Colon cancer metastatic
     Dosage: 12 CYCLE?CUMULATIVE DOSE UNTIL FIRST REACTION: 12 CYCLE
     Dates: start: 2011
  2. OXALIPLATIN [Suspect]
     Active Substance: OXALIPLATIN
     Indication: Metastases to liver
     Dosage: 12 CYCLE?CUMULATIVE DOSE UNTIL FIRST REACTION: 12 CYCLE
     Dates: start: 2011
  3. LEUCOVORIN [Concomitant]
     Active Substance: LEUCOVORIN\LEUCOVORIN CALCIUM
     Indication: Colon cancer metastatic
     Dates: start: 2011
  4. FLUOROURACIL [Suspect]
     Active Substance: FLUOROURACIL
     Indication: Adenocarcinoma of colon
     Dosage: CUMULATIVE DOSE UNTIL FIRST REACTION:12 CYCLE
     Dates: start: 2011
  5. LEUCOVORIN [Concomitant]
     Active Substance: LEUCOVORIN\LEUCOVORIN CALCIUM
     Indication: Metastases to liver
     Dates: start: 2011
  6. OXALIPLATIN [Suspect]
     Active Substance: OXALIPLATIN
     Indication: Colon cancer metastatic
     Dosage: CUMULATIVE DOSE UNTIL FIRST REACTION: 12 CYCLE
     Dates: start: 2011

REACTIONS (1)
  - Chronic myeloid leukaemia [Unknown]
